FAERS Safety Report 8179673-6 (Version None)
Quarter: 2012Q1

REPORT INFORMATION
  Report Type: 
  Country: None (occurrence: None)
  Receive Date: 20120229
  Receipt Date: 20120223
  Transmission Date: 20120608
  Serious: Yes (Other)
  Sender: FDA-Public Use
  Company Number: USA/USA/12/0023150

PATIENT
  Age: 45 Year
  Sex: Male
  Weight: 57.6068 kg

DRUGS (2)
  1. TACROLIMUS [Suspect]
     Indication: PROPHYLAXIS AGAINST TRANSPLANT REJECTION
     Dosage: 1 MG, 2 IN 1 D, ORAL
     Route: 048
     Dates: start: 20110101, end: 20110101
  2. PROGRAF [Suspect]
     Indication: PROPHYLAXIS AGAINST TRANSPLANT REJECTION
     Dosage: 1 MG, 2 IN 1 D, ORAL
     Route: 048
     Dates: start: 20090109, end: 20110101

REACTIONS (2)
  - RENAL IMPAIRMENT [None]
  - LIVER TRANSPLANT [None]
